FAERS Safety Report 25400768 (Version 1)
Quarter: 2025Q2

REPORT INFORMATION
  Report Type: Other
  Country: JP (occurrence: JP)
  Receive Date: 20250605
  Receipt Date: 20250605
  Transmission Date: 20250716
  Serious: Yes (Hospitalization, Other)
  Sender: NUVO PHARMACEUTICALS
  Company Number: JP-Nuvo Pharmaceuticals Inc-2178095

PATIENT
  Age: 52 Year
  Sex: Male

DRUGS (3)
  1. OXYCODONE HYDROCHLORIDE [Suspect]
     Active Substance: OXYCODONE HYDROCHLORIDE
     Indication: Back pain
  2. AMITRIPTYLINE HYDROCHLORIDE [Interacting]
     Active Substance: AMITRIPTYLINE HYDROCHLORIDE
  3. MIROGABALIN [Concomitant]
     Active Substance: MIROGABALIN

REACTIONS (3)
  - Serotonin syndrome [Recovered/Resolved]
  - Drug ineffective [Unknown]
  - Drug interaction [Unknown]
